FAERS Safety Report 8399639 (Version 3)
Quarter: 2013Q1

REPORT INFORMATION
  Report Type: Spontaneous
  Country: US (occurrence: US)
  Receive Date: 20120210
  Receipt Date: 20130108
  Transmission Date: 20140127
  Serious: Yes (Hospitalization)
  Sender: FDA-Public Use
  Company Number: US-SANOFI-AVENTIS-2012SA007479

PATIENT
  Age: 74 Year
  Sex: Female
  Weight: 42.4 kg

DRUGS (11)
  1. DOCETAXEL [Suspect]
     Indication: FALLOPIAN TUBE CANCER
     Dosage: SUBSTITUTED FOR PACLITAXEL AFTER REACTION DURING CYCLE 1 DAY 1
     Route: 065
  2. DOCETAXEL [Suspect]
     Indication: FALLOPIAN TUBE CANCER
     Route: 065
     Dates: start: 20120111
  3. BEVACIZUMAB [Suspect]
     Indication: FALLOPIAN TUBE CANCER
     Dosage: OVER 30-90 MIN ON DAY 1?DOSE: 670 MG
     Route: 042
     Dates: start: 20110907
  4. BEVACIZUMAB [Suspect]
     Indication: FALLOPIAN TUBE CANCER
     Dosage: DOSE:670 MG
     Route: 042
     Dates: start: 20120111
  5. BEVACIZUMAB [Suspect]
     Indication: FALLOPIAN TUBE CANCER
     Dosage: DOSE:670 MG
     Route: 042
     Dates: start: 20111129
  6. CISPLATIN [Suspect]
     Indication: FALLOPIAN TUBE CANCER
     Dosage: ON DAY 2
     Route: 033
     Dates: start: 20110907
  7. CISPLATIN [Suspect]
     Indication: FALLOPIAN TUBE CANCER
     Dosage: TOTAL DOSE:100MG
     Route: 033
     Dates: start: 20111130
  8. CISPLATIN [Suspect]
     Indication: FALLOPIAN TUBE CANCER
     Dosage: TOTAL DOSE:100MG
     Route: 033
     Dates: start: 20120112
  9. PACLITAXEL [Suspect]
     Indication: FALLOPIAN TUBE CANCER
     Dosage: OVER 3 HOURS ON DAY 1
     Route: 042
     Dates: start: 20110907, end: 20111115
  10. PACLITAXEL [Suspect]
     Indication: FALLOPIAN TUBE CANCER
     Dosage: ON DAY 8
     Route: 042
     Dates: start: 20110907, end: 20111115
  11. PACLITAXEL [Suspect]
     Indication: FALLOPIAN TUBE CANCER
     Dosage: ON DAY 8
     Route: 042
     Dates: start: 20120118

REACTIONS (12)
  - Failure to thrive [Recovered/Resolved with Sequelae]
  - Hypokalaemia [Not Recovered/Not Resolved]
  - Dehydration [Not Recovered/Not Resolved]
  - Diarrhoea [Not Recovered/Not Resolved]
  - Vomiting [Not Recovered/Not Resolved]
  - Febrile neutropenia [Not Recovered/Not Resolved]
  - Decreased appetite [Unknown]
  - Anxiety [Recovered/Resolved with Sequelae]
  - Confusional state [Recovered/Resolved with Sequelae]
  - Aspiration [Not Recovered/Not Resolved]
  - Hypertension [Recovered/Resolved with Sequelae]
  - Hypoxia [Not Recovered/Not Resolved]
